FAERS Safety Report 17478888 (Version 2)
Quarter: 2020Q2

REPORT INFORMATION
  Report Type: Report from Study
  Country: GB (occurrence: GB)
  Receive Date: 20200228
  Receipt Date: 20200603
  Transmission Date: 20200713
  Serious: Yes (Hospitalization, Other)
  Sender: FDA-Public Use
  Company Number: GB-JNJFOC-20191027260

PATIENT
  Sex: Male

DRUGS (30)
  1. STELARA [Suspect]
     Active Substance: USTEKINUMAB
     Indication: PSORIASIS
     Route: 058
     Dates: start: 20160324
  2. AVENO                              /01700001/ [Concomitant]
  3. PIRITON [Concomitant]
     Active Substance: CHLORPHENIRAMINE MALEATE
  4. AMLODIPINE [Concomitant]
     Active Substance: AMLODIPINE BESYLATE
  5. IRBESARTAN. [Concomitant]
     Active Substance: IRBESARTAN
  6. COCODAMOL [Concomitant]
     Active Substance: ACETAMINOPHEN\CODEINE PHOSPHATE
  7. SODIUM HYDROXIDE. [Concomitant]
     Active Substance: SODIUM HYDROXIDE
  8. FLUTICASONE. [Concomitant]
     Active Substance: FLUTICASONE
  9. PROPIONATE [Concomitant]
  10. STELARA [Suspect]
     Active Substance: USTEKINUMAB
  11. OTOMIZE [Concomitant]
     Active Substance: DEXAMETHASONE\NEOMYCIN SULFATE
  12. FLIXONASE [Concomitant]
     Active Substance: FLUTICASONE PROPIONATE
  13. BETAHISTINE [Concomitant]
     Active Substance: BETAHISTINE
  14. CALCIPOTRIOL/BETAMETHASONE SANDOZ [Concomitant]
  15. RANITIDINE. [Concomitant]
     Active Substance: RANITIDINE
  16. FEXOFENADINE [Concomitant]
     Active Substance: FEXOFENADINE HYDROCHLORIDE
  17. PANTOPRAZOLE [Concomitant]
     Active Substance: PANTOPRAZOLE
  18. NITRATE D^ ARGENT FAURE [Concomitant]
  19. FLUOXETINE [Concomitant]
     Active Substance: FLUOXETINE HYDROCHLORIDE
  20. FERROUS FUMARATE [Concomitant]
     Active Substance: FERROUS FUMARATE
  21. MAXOLON [Concomitant]
     Active Substance: METOCLOPRAMIDE HYDROCHLORIDE
  22. NAPROXEN. [Concomitant]
     Active Substance: NAPROXEN
  23. PEPTAC                             /00550802/ [Concomitant]
  24. ALPHOSYL                           /01514901/ [Concomitant]
  25. ATORVASTATIN [Concomitant]
     Active Substance: ATORVASTATIN
  26. SERC                               /00034201/ [Concomitant]
     Active Substance: THIORIDAZINE
  27. CLOTRIMAZOLE. [Concomitant]
     Active Substance: CLOTRIMAZOLE
  28. EUCERIN                            /01160201/ [Concomitant]
     Active Substance: LANOLIN\MINERAL OIL\PETROLATUM
  29. SODIUM CROMOGLICATE [Concomitant]
     Active Substance: CROMOLYN SODIUM
  30. MICONAZOLE. [Concomitant]
     Active Substance: MICONAZOLE

REACTIONS (8)
  - Post viral fatigue syndrome [Unknown]
  - Psoriasis [Not Recovered/Not Resolved]
  - Psoriatic arthropathy [Not Recovered/Not Resolved]
  - Off label use [Unknown]
  - Ear infection [Unknown]
  - Melanocytic naevus [Unknown]
  - Joint swelling [Unknown]
  - Inappropriate schedule of product administration [Unknown]
